FAERS Safety Report 19245823 (Version 1)
Quarter: 2021Q2

REPORT INFORMATION
  Report Type: Report from Study
  Country: None (occurrence: NL)
  Receive Date: 20210511
  Receipt Date: 20210511
  Transmission Date: 20210717
  Serious: Yes (Other)
  Sender: FDA-Public Use
  Company Number: NL-ABBVIE-19S-114-2804432-00

PATIENT
  Sex: Female
  Weight: 55.3 kg

DRUGS (7)
  1. DUODOPA [Suspect]
     Active Substance: CARBIDOPA\LEVODOPA
     Dosage: MD 3.3 CD 1.4 ED 1.0
     Route: 050
  2. DUODOPA [Suspect]
     Active Substance: CARBIDOPA\LEVODOPA
     Dosage: MD: 3.3ML CD: 1.5ML/H ED: 1.0ML
     Route: 050
  3. MACROGOL [Concomitant]
     Active Substance: POLYETHYLENE GLYCOLS
     Indication: PRODUCT USED FOR UNKNOWN INDICATION
  4. DUODOPA [Suspect]
     Active Substance: CARBIDOPA\LEVODOPA
     Dosage: MD 3.3 CD 1.3 ED 1.0
     Route: 050
  5. DUODOPA [Suspect]
     Active Substance: CARBIDOPA\LEVODOPA
     Indication: PARKINSON^S DISEASE
     Dosage: MD: 3.3ML CD: 1.3ML/H ED: 1.0ML
     Route: 050
     Dates: start: 20160615
  6. DUODOPA [Suspect]
     Active Substance: CARBIDOPA\LEVODOPA
     Route: 050
  7. DUODOPA [Suspect]
     Active Substance: CARBIDOPA\LEVODOPA
     Route: 050

REACTIONS (54)
  - Memory impairment [Not Recovered/Not Resolved]
  - Restlessness [Not Recovered/Not Resolved]
  - Asthenia [Not Recovered/Not Resolved]
  - Middle insomnia [Not Recovered/Not Resolved]
  - Bradykinesia [Not Recovered/Not Resolved]
  - Confusional state [Not Recovered/Not Resolved]
  - Device issue [Not Recovered/Not Resolved]
  - Dyskinesia [Not Recovered/Not Resolved]
  - Memory impairment [Recovering/Resolving]
  - Abnormal faeces [Not Recovered/Not Resolved]
  - Psychiatric symptom [Not Recovered/Not Resolved]
  - Speech disorder [Not Recovered/Not Resolved]
  - Loss of personal independence in daily activities [Not Recovered/Not Resolved]
  - Weight increased [Recovered/Resolved]
  - Weight increased [Recovered/Resolved]
  - Freezing phenomenon [Not Recovered/Not Resolved]
  - Gait disturbance [Recovering/Resolving]
  - Stoma site reaction [Recovered/Resolved]
  - Constipation [Not Recovered/Not Resolved]
  - Stress [Not Recovered/Not Resolved]
  - Weight fluctuation [Not Recovered/Not Resolved]
  - Mobility decreased [Not Recovered/Not Resolved]
  - Cognitive disorder [Not Recovered/Not Resolved]
  - Musculoskeletal stiffness [Not Recovered/Not Resolved]
  - Tension [Not Recovered/Not Resolved]
  - Fall [Not Recovered/Not Resolved]
  - Refusal of treatment by patient [Not Recovered/Not Resolved]
  - Fall [Unknown]
  - Suicidal ideation [Unknown]
  - Balance disorder [Not Recovered/Not Resolved]
  - Hallucination [Recovered/Resolved]
  - Drug ineffective [Not Recovered/Not Resolved]
  - Abnormal dreams [Not Recovered/Not Resolved]
  - Dyskinesia [Recovered/Resolved]
  - Muscle rigidity [Unknown]
  - General physical health deterioration [Not Recovered/Not Resolved]
  - Hypophagia [Recovered/Resolved]
  - Hyperhidrosis [Not Recovered/Not Resolved]
  - Unevaluable event [Not Recovered/Not Resolved]
  - Abnormal faeces [Not Recovered/Not Resolved]
  - Abnormal faeces [Recovered/Resolved]
  - Communication disorder [Not Recovered/Not Resolved]
  - Hyperkinesia [Not Recovered/Not Resolved]
  - On and off phenomenon [Recovered/Resolved]
  - Dyskinesia [Recovered/Resolved]
  - Parkinson^s disease [Not Recovered/Not Resolved]
  - Product cleaning inadequate [Unknown]
  - Stoma site erythema [Recovered/Resolved]
  - Asthenia [Unknown]
  - Hallucination [Not Recovered/Not Resolved]
  - Hypophagia [Not Recovered/Not Resolved]
  - Fall [Recovered/Resolved]
  - Fear [Not Recovered/Not Resolved]
  - Diarrhoea [Not Recovered/Not Resolved]

NARRATIVE: CASE EVENT DATE: 2020
